FAERS Safety Report 25387081 (Version 1)
Quarter: 2025Q2

REPORT INFORMATION
  Report Type: Spontaneous
  Country: US (occurrence: US)
  Receive Date: 20250602
  Receipt Date: 20250602
  Transmission Date: 20250717
  Serious: No
  Sender: MERCK SHARP & DOHME LLC
  Company Number: US-009507513-2288728

PATIENT
  Sex: Female
  Weight: 59.874 kg

DRUGS (29)
  1. SOTATERCEPT [Suspect]
     Active Substance: SOTATERCEPT
  2. SOTATERCEPT [Suspect]
     Active Substance: SOTATERCEPT
  3. SOTATERCEPT [Suspect]
     Active Substance: SOTATERCEPT
  4. SOTATERCEPT [Suspect]
     Active Substance: SOTATERCEPT
  5. REMODULIN [Suspect]
     Active Substance: TREPROSTINIL
     Indication: Pulmonary arterial hypertension
     Route: 041
     Dates: start: 20221019
  6. FAMOTIDINE [Concomitant]
     Active Substance: FAMOTIDINE
  7. GABAPENTIN [Concomitant]
     Active Substance: GABAPENTIN
  8. PREDNISOLONE ACETATE [Concomitant]
     Active Substance: PREDNISOLONE ACETATE
  9. PRASTERONE [Concomitant]
     Active Substance: PRASTERONE
  10. VITAMIN D2 [Concomitant]
     Active Substance: ERGOCALCIFEROL
  11. LISINOPRIL [Concomitant]
     Active Substance: LISINOPRIL
  12. ALDACTONE [Concomitant]
     Active Substance: SPIRONOLACTONE
  13. CALCIUM CARBONATE\CHOLECALCIFEROL [Concomitant]
     Active Substance: CALCIUM CARBONATE\CHOLECALCIFEROL
  14. IMODIUM A-D [Concomitant]
     Active Substance: LOPERAMIDE HYDROCHLORIDE
  15. FOLIC ACID [Concomitant]
     Active Substance: FOLIC ACID
  16. SODIUM CHLORIDE [Concomitant]
     Active Substance: SODIUM CHLORIDE
  17. LATANOPROST\TIMOLOL MALEATE [Concomitant]
     Active Substance: LATANOPROST\TIMOLOL MALEATE
  18. ARAVA [Concomitant]
     Active Substance: LEFLUNOMIDE
  19. TADALAFIL [Concomitant]
     Active Substance: TADALAFIL
  20. PREDNISONE [Concomitant]
     Active Substance: PREDNISONE
  21. REMICADE [Concomitant]
     Active Substance: INFLIXIMAB
  22. LETAIRIS [Concomitant]
     Active Substance: AMBRISENTAN
  23. Multivitamins (Ascorbic acid, Ergocalciferol, Folic acid, Nicotinam... [Concomitant]
  24. OXYGEN [Concomitant]
     Active Substance: OXYGEN
  25. DIGOXIN [Concomitant]
     Active Substance: DIGOXIN
  26. FOSAMAX [Concomitant]
     Active Substance: ALENDRONATE SODIUM
  27. MELATONIN [Concomitant]
     Active Substance: MELATONIN
  28. TRIAMCINOLONE ACETONIDE [Concomitant]
     Active Substance: TRIAMCINOLONE ACETONIDE
  29. ONDANSETRON HYDROCHLORIDE [Concomitant]
     Active Substance: ONDANSETRON HYDROCHLORIDE

REACTIONS (1)
  - Injection site erythema [Unknown]
